FAERS Safety Report 8132287-6 (Version None)
Quarter: 2012Q1

REPORT INFORMATION
  Report Type: 
  Country: None (occurrence: None)
  Receive Date: 20120213
  Receipt Date: 20120206
  Transmission Date: 20120608
  Serious: Yes (Other)
  Sender: FDA-Public Use
  Company Number: CA-B.I. PHARMACEUTICALS,INC./RIDGEFIELD-2012-CN-00196CN

PATIENT
  Age: 73 Year
  Sex: Female

DRUGS (14)
  1. CATAPRES [Suspect]
     Route: 048
  2. CLONAZEPAM [Suspect]
     Dosage: 0.5 MG
     Route: 048
  3. SOTALOL HCL [Suspect]
     Dosage: 80 MG
     Route: 048
  4. ASPIRIN [Concomitant]
     Route: 065
  5. BUTRANS [Suspect]
     Route: 062
  6. LORAZEPAM [Concomitant]
     Route: 065
  7. ACETAMINOPHEN [Concomitant]
     Route: 065
  8. LACTULOSE [Concomitant]
     Route: 065
  9. CYCLOBENZAPRINE [Suspect]
     Route: 048
  10. NORVASC [Suspect]
     Dosage: 10 MG
     Route: 048
  11. PANTOPRAZOLE [Suspect]
     Dosage: 40 MG
     Route: 048
  12. CARDURA [Suspect]
     Dosage: 1 MG
     Route: 048
  13. DIOVAN HCT [Suspect]
     Dosage: 160 MG
     Route: 048
  14. IMOVANE [Concomitant]
     Route: 065

REACTIONS (1)
  - URINARY INCONTINENCE [None]
